FAERS Safety Report 10254743 (Version 3)
Quarter: 2014Q4

REPORT INFORMATION
  Report Type: Report from Study
  Country: DE (occurrence: DE)
  Receive Date: 20140624
  Receipt Date: 20141008
  Transmission Date: 20150528
  Serious: Yes (Hospitalization)
  Sender: FDA-Public Use
  Company Number: DE-ROCHE-1417060

PATIENT
  Age: 74 Year
  Sex: Male
  Weight: 90 kg

DRUGS (31)
  1. CAPECITABINE. [Concomitant]
     Active Substance: CAPECITABINE
     Route: 048
     Dates: start: 20130730, end: 20130812
  2. CAPECITABINE. [Concomitant]
     Active Substance: CAPECITABINE
     Route: 048
     Dates: start: 20130820, end: 20130902
  3. CAPECITABINE. [Concomitant]
     Active Substance: CAPECITABINE
     Route: 048
     Dates: start: 20130924, end: 20130930
  4. CAPECITABINE. [Concomitant]
     Active Substance: CAPECITABINE
     Route: 048
     Dates: start: 20140304, end: 20140317
  5. CAPECITABINE. [Concomitant]
     Active Substance: CAPECITABINE
     Route: 048
     Dates: start: 20140325, end: 20140407
  6. IRINOTECAN [Concomitant]
     Active Substance: IRINOTECAN
     Route: 042
     Dates: start: 20130415, end: 20130415
  7. IRINOTECAN [Concomitant]
     Active Substance: IRINOTECAN
     Route: 042
     Dates: start: 20130521, end: 20130521
  8. IRINOTECAN [Concomitant]
     Active Substance: IRINOTECAN
     Route: 042
     Dates: start: 20130618, end: 20130618
  9. CAPECITABINE. [Concomitant]
     Active Substance: CAPECITABINE
     Route: 048
     Dates: start: 20131127, end: 20131210
  10. CAPECITABINE. [Concomitant]
     Active Substance: CAPECITABINE
     Route: 048
     Dates: start: 20140211, end: 20140225
  11. IRINOTECAN [Concomitant]
     Active Substance: IRINOTECAN
     Route: 042
     Dates: start: 20130528, end: 20130528
  12. BEVACIZUMAB [Suspect]
     Active Substance: BEVACIZUMAB
     Route: 042
     Dates: start: 20140506
  13. CAPECITABINE. [Concomitant]
     Active Substance: CAPECITABINE
     Route: 048
     Dates: start: 20130910, end: 20130916
  14. CAPECITABINE. [Concomitant]
     Active Substance: CAPECITABINE
     Route: 048
     Dates: start: 20140114, end: 20140127
  15. IRINOTECAN [Concomitant]
     Active Substance: IRINOTECAN
     Indication: COLORECTAL CANCER
     Dosage: ON D1 AND D8 OF EACH CYCLE
     Route: 042
     Dates: start: 20130408, end: 20130408
  16. IRINOTECAN [Concomitant]
     Active Substance: IRINOTECAN
     Route: 042
     Dates: start: 20130611, end: 20130611
  17. IRINOTECAN [Concomitant]
     Active Substance: IRINOTECAN
     Route: 042
     Dates: start: 20130709, end: 20130709
  18. CAPECITABINE. [Concomitant]
     Active Substance: CAPECITABINE
     Indication: COLORECTAL CANCER
     Route: 048
     Dates: start: 20130408, end: 20130421
  19. CAPECITABINE. [Concomitant]
     Active Substance: CAPECITABINE
     Route: 048
     Dates: start: 20131105, end: 20131118
  20. CAPECITABINE. [Concomitant]
     Active Substance: CAPECITABINE
     Route: 048
     Dates: start: 20131217, end: 20131230
  21. CAPECITABINE. [Concomitant]
     Active Substance: CAPECITABINE
     Route: 048
     Dates: start: 20140506, end: 20140520
  22. IRINOTECAN [Concomitant]
     Active Substance: IRINOTECAN
     Route: 042
     Dates: start: 20130730, end: 20130730
  23. IRINOTECAN [Concomitant]
     Active Substance: IRINOTECAN
     Route: 042
     Dates: start: 20130806, end: 20130806
  24. BEVACIZUMAB [Suspect]
     Active Substance: BEVACIZUMAB
     Indication: COLORECTAL CANCER
     Route: 042
     Dates: start: 20130408, end: 20140415
  25. CAPECITABINE. [Concomitant]
     Active Substance: CAPECITABINE
     Route: 048
     Dates: start: 20130429, end: 20130512
  26. CAPECITABINE. [Concomitant]
     Active Substance: CAPECITABINE
     Route: 048
     Dates: start: 20130610, end: 20130623
  27. CAPECITABINE. [Concomitant]
     Active Substance: CAPECITABINE
     Route: 048
     Dates: start: 20130701, end: 20130714
  28. CAPECITABINE. [Concomitant]
     Active Substance: CAPECITABINE
     Route: 048
     Dates: start: 20140415, end: 20140429
  29. CAPECITABINE. [Concomitant]
     Active Substance: CAPECITABINE
     Route: 048
     Dates: start: 20130520, end: 20130602
  30. IRINOTECAN [Concomitant]
     Active Substance: IRINOTECAN
     Route: 042
     Dates: start: 20130429, end: 20130429
  31. IRINOTECAN [Concomitant]
     Active Substance: IRINOTECAN
     Route: 042
     Dates: start: 20130702, end: 20130702

REACTIONS (2)
  - Hernia [Recovered/Resolved]
  - Arterial occlusive disease [Recovered/Resolved]

NARRATIVE: CASE EVENT DATE: 20140509
